FAERS Safety Report 7880629-9 (Version None)
Quarter: 2011Q4

REPORT INFORMATION
  Report Type: 
  Country: None (occurrence: None)
  Receive Date: 20111101
  Receipt Date: 20111027
  Transmission Date: 20120403
  Serious: Yes (Hospitalization)
  Sender: FDA-Public Use
  Company Number: US-AMGEN-USASP2011055801

PATIENT
  Age: 52 Year
  Sex: Female

DRUGS (3)
  1. ENBREL [Suspect]
  2. ENBREL [Suspect]
     Indication: RHEUMATOID ARTHRITIS
     Dosage: 50 MG, QWK
     Dates: start: 20090101
  3. ENBREL [Suspect]
     Indication: JUVENILE ARTHRITIS

REACTIONS (6)
  - ASTHENIA [None]
  - KNEE ARTHROPLASTY [None]
  - BODY TEMPERATURE FLUCTUATION [None]
  - RASH [None]
  - JUVENILE ARTHRITIS [None]
  - INJECTION SITE HAEMORRHAGE [None]
